FAERS Safety Report 7090105-1 (Version None)
Quarter: 2010Q4

REPORT INFORMATION
  Report Type: 
  Country: None (occurrence: None)
  Receive Date: 20101105
  Receipt Date: 20101105
  Transmission Date: 20110411
  Serious: Yes (Other)
  Sender: FDA-Public Use
  Company Number: None

PATIENT
  Sex: Female
  Weight: 238 kg

DRUGS (2)
  1. METFORMIN HCL [Suspect]
     Indication: TYPE 2 DIABETES MELLITUS
     Dosage: 1 2X DAILY 2X DAILY ORAL
     Route: 048
     Dates: start: 20090601, end: 20100801
  2. METFORMIN HCL [Suspect]
     Indication: TYPE 2 DIABETES MELLITUS
     Dosage: 2-3 DAILY 2X DAILY ORAL
     Route: 048
     Dates: start: 20090601, end: 20100801

REACTIONS (1)
  - DIARRHOEA [None]
